FAERS Safety Report 14347332 (Version 4)
Quarter: 2018Q1

REPORT INFORMATION
  Report Type: Spontaneous
  Country: JP (occurrence: JP)
  Receive Date: 20180103
  Receipt Date: 20180125
  Transmission Date: 20180509
  Serious: Yes (Hospitalization)
  Sender: FDA-Public Use
  Company Number: JP-009507513-1711JPN002622J

PATIENT
  Age: 76 Year
  Sex: Female

DRUGS (3)
  1. HALOPERIDOL. [Suspect]
     Active Substance: HALOPERIDOL
     Dosage: UNK
     Route: 048
  2. BIPERIDEN HYDROCHLORIDE [Suspect]
     Active Substance: BIPERIDEN HYDROCHLORIDE
     Dosage: UNK
     Route: 048
  3. JANUVIA [Suspect]
     Active Substance: SITAGLIPTIN PHOSPHATE
     Dosage: UNK
     Route: 048

REACTIONS (1)
  - Pyrexia [Recovered/Resolved]
